FAERS Safety Report 24216959 (Version 1)
Quarter: 2024Q3

REPORT INFORMATION
  Report Type: Spontaneous
  Country: US (occurrence: US)
  Receive Date: 20240816
  Receipt Date: 20240816
  Transmission Date: 20241017
  Serious: Yes (Death, Life-Threatening, Hospitalization, Other)
  Sender: RANBAXY
  Company Number: US-SUN PHARMACEUTICAL INDUSTRIES LTD-2024R1-463052

PATIENT
  Age: 46 Year
  Sex: Female

DRUGS (4)
  1. EPOPROSTENOL [Suspect]
     Active Substance: EPOPROSTENOL
     Indication: Pneumonia
     Dosage: UNK
     Route: 042
  2. EPOPROSTENOL [Suspect]
     Active Substance: EPOPROSTENOL
     Indication: Right ventricular dysfunction
  3. NITRIC OXIDE [Suspect]
     Active Substance: NITRIC OXIDE
     Indication: Pneumonia
     Dosage: UNK
  4. NITRIC OXIDE [Suspect]
     Active Substance: NITRIC OXIDE
     Indication: Right ventricular dysfunction

REACTIONS (6)
  - Disease recurrence [Fatal]
  - Multiple organ dysfunction syndrome [Fatal]
  - Disease progression [Unknown]
  - Cardiogenic shock [Unknown]
  - Therapy non-responder [Unknown]
  - Cardiac failure acute [Unknown]
